FAERS Safety Report 5385000-X (Version None)
Quarter: 2007Q3

REPORT INFORMATION
  Report Type: 
  Country: None (occurrence: None)
  Receive Date: 20070712
  Receipt Date: 20070703
  Transmission Date: 20080115
  Serious: Yes (Other)
  Sender: FDA-Public Use
  Company Number: PHBS2007IE07290

PATIENT
  Age: 30 Year
  Sex: Female

DRUGS (2)
  1. EXJADE [Suspect]
     Dosage: 30 MG/KG/D
     Route: 048
  2. ESOMEPRAZOLE MAGNESIUM [Concomitant]
     Dosage: 40 MG, QD

REACTIONS (6)
  - BALANCE DISORDER [None]
  - DIZZINESS [None]
  - GAIT DISTURBANCE [None]
  - HYPOACUSIS [None]
  - NERVOUS SYSTEM DISORDER [None]
  - TINNITUS [None]
